FAERS Safety Report 6518341-0 (Version None)
Quarter: 2009Q4

REPORT INFORMATION
  Report Type: 
  Country: None (occurrence: None)
  Receive Date: 20091224
  Receipt Date: 20091123
  Transmission Date: 20100525
  Serious: No
  Sender: FDA-Public Use
  Company Number: US-BAYER-200940890NA

PATIENT
  Age: 40 Year
  Sex: Female
  Weight: 59 kg

DRUGS (5)
  1. MIRENA [Suspect]
     Indication: MENSTRUAL DISORDER
     Dosage: CONTINUOUS
     Route: 015
     Dates: start: 20070501
  2. TYLENOL (CAPLET) [Concomitant]
  3. PATSINATE NASAL SPRAY [Concomitant]
     Route: 045
  4. KLONOPIN [Concomitant]
  5. METRONIDAZOLE [Concomitant]

REACTIONS (15)
  - ABDOMINAL DISTENSION [None]
  - ACNE [None]
  - AMNESIA [None]
  - ARTHRALGIA [None]
  - BACTERIAL INFECTION [None]
  - BLEPHAROSPASM [None]
  - CHEST PAIN [None]
  - DRY THROAT [None]
  - EYE PAIN [None]
  - HOT FLUSH [None]
  - POST PROCEDURAL HAEMORRHAGE [None]
  - UNEVALUABLE EVENT [None]
  - VAGINAL DISCHARGE [None]
  - VISUAL IMPAIRMENT [None]
  - WEIGHT INCREASED [None]
